FAERS Safety Report 19964057 (Version 1)
Quarter: 2021Q4

REPORT INFORMATION
  Report Type: Spontaneous
  Country: US (occurrence: US)
  Receive Date: 20211018
  Receipt Date: 20211018
  Transmission Date: 20220303
  Serious: No
  Sender: FDA-Public Use
  Company Number: None

PATIENT
  Sex: Male

DRUGS (3)
  1. MYCOPHENOLIC ACID [Suspect]
     Active Substance: MYCOPHENOLIC ACID
     Indication: Immune thrombocytopenia
     Route: 048
     Dates: start: 20211008
  2. MYCOPHENOLIC ACID [Suspect]
     Active Substance: MYCOPHENOLIC ACID
     Indication: Immune thrombocytopenia
     Route: 048
     Dates: start: 20211008
  3. TAVALISSE [Concomitant]
     Active Substance: FOSTAMATINIB
     Dates: start: 20210701

REACTIONS (1)
  - Pneumonia [None]
